FAERS Safety Report 6574564-6 (Version None)
Quarter: 2010Q1

REPORT INFORMATION
  Report Type: 
  Country: None (occurrence: None)
  Receive Date: 20100209
  Receipt Date: 20091204
  Transmission Date: 20100710
  Serious: No
  Sender: FDA-Public Use
  Company Number: A0833630A

PATIENT
  Age: 65 Year
  Sex: Male

DRUGS (4)
  1. PAXIL CR [Suspect]
     Indication: PANIC DISORDER
     Route: 048
     Dates: start: 20020101
  2. BEER [Suspect]
  3. LIPITOR [Concomitant]
  4. BLOOD PRESSURE MEDICATION [Concomitant]

REACTIONS (1)
  - MEMORY IMPAIRMENT [None]
